FAERS Safety Report 14250842 (Version 1)
Quarter: 2017Q4

REPORT INFORMATION
  Report Type: Spontaneous
  Country: US (occurrence: None)
  Receive Date: 20171205
  Receipt Date: 20171205
  Transmission Date: 20180321
  Serious: Yes (Life-Threatening, Disabling)
  Sender: FDA-Public Use
  Company Number: None

PATIENT
  Age: 61 Year
  Sex: Female
  Weight: 58.51 kg

DRUGS (17)
  1. LEVOFLOXACIN. [Suspect]
     Active Substance: LEVOFLOXACIN
     Indication: STREPTOCOCCAL URINARY TRACT INFECTION
     Route: 048
     Dates: start: 20161013, end: 20161017
  2. GOLDENSEAL [Concomitant]
     Active Substance: HERBALS\HOMEOPATHICS\GOLDENSEAL
  3. MAGNESIUM GLYCINATE [Concomitant]
     Active Substance: MAGNESIUM GLYCINATE
  4. RESVERATROL [Concomitant]
     Active Substance: DIETARY SUPPLEMENT\RESVERATROL
  5. VITAMIN C [Concomitant]
     Active Substance: ASCORBIC ACID
  6. SELENIUM [Concomitant]
     Active Substance: SELENIUM
  7. KYOLIC GARLIC [Concomitant]
     Active Substance: DIETARY SUPPLEMENT
  8. HELPLUS DIGESTIVE ENZYMES (PLUS GENTIAN) [Concomitant]
  9. MARSHMALLOW ROOT [Concomitant]
  10. NIACINAMIDE [Concomitant]
     Active Substance: NIACINAMIDE
  11. CALCIUM [Concomitant]
     Active Substance: CALCIUM
  12. COQ10 [Concomitant]
     Active Substance: UBIDECARENONE
  13. VITAMIN D3 [Concomitant]
     Active Substance: CHOLECALCIFEROL
  14. SLIPPERY ELM TEA [Concomitant]
  15. ECHINACEA [Concomitant]
     Active Substance: ECHINACEA, UNSPECIFIED
  16. RIBOFLAVIN [Concomitant]
     Active Substance: RIBOFLAVIN
  17. ELECAMPANE [Concomitant]

REACTIONS (13)
  - Dental caries [None]
  - Arthralgia [None]
  - Memory impairment [None]
  - Cough [None]
  - Hypertension [None]
  - Panic attack [None]
  - Disturbance in attention [None]
  - Back pain [None]
  - Respiratory tract irritation [None]
  - Abdominal pain [None]
  - Lung disorder [None]
  - Anxiety [None]
  - Cardiac failure [None]

NARRATIVE: CASE EVENT DATE: 20161013
